FAERS Safety Report 8941429 (Version 1)
Quarter: 2012Q4

REPORT INFORMATION
  Report Type: 
  Country: DE (occurrence: FR)
  Receive Date: 20121203
  Receipt Date: 20121203
  Transmission Date: 20130627
  Serious: Yes (Death)
  Sender: FDA-Public Use
  Company Number: FR-FRI-1000040614

PATIENT
  Age: 92 Year
  Sex: Female

DRUGS (12)
  1. MEMANTINE [Suspect]
     Indication: DEMENTIA ALZHEIMER^S TYPE
     Dosage: 20 mg
     Route: 048
     Dates: end: 20121018
  2. LEPONEX [Suspect]
     Indication: PSYCHOTIC DISORDER
     Dosage: 25 mg
     Route: 048
     Dates: end: 20121007
  3. LEPONEX [Suspect]
     Dosage: 37.5 mg
     Route: 048
     Dates: start: 20121008, end: 20121018
  4. ARICEPT [Suspect]
     Indication: DEMENTIA ALZHEIMER^S TYPE
     Dosage: 5 mg
     Route: 048
     Dates: end: 20121018
  5. XANAX [Suspect]
     Indication: ANXIETY
     Dosage: 2 DF
     Route: 048
     Dates: end: 20121018
  6. IMOVANE [Suspect]
     Indication: INSOMNIA
     Dosage: 1 DF
     Dates: end: 20121018
  7. SPIRONOLACTONE [Concomitant]
     Dosage: 50 mg
     Dates: end: 20121018
  8. LOXEN [Concomitant]
     Dosage: 100 mg
     Dates: end: 20121018
  9. DOLIPRANE [Concomitant]
     Dosage: 2 G
     Dates: end: 20121018
  10. URAPIDIL [Concomitant]
     Dosage: 60 mg
     Dates: end: 20121018
  11. FUROSEMIDE [Concomitant]
     Dosage: 25 mg
     Dates: end: 20121018
  12. ACETYLSALICYLATE LYSINE [Concomitant]
     Dosage: 100 mg
     Dates: end: 20121018

REACTIONS (4)
  - Extrapyramidal disorder [Fatal]
  - Convulsion [Fatal]
  - Depressed level of consciousness [Fatal]
  - Hypothermia [Fatal]
